FAERS Safety Report 9025475 (Version 1)
Quarter: 2013Q1

REPORT INFORMATION
  Report Type: Spontaneous
  Country: CH (occurrence: CH)
  Receive Date: 20130122
  Receipt Date: 20130122
  Transmission Date: 20140127
  Serious: Yes (Other)
  Sender: FDA-Public Use
  Company Number: CH-VERTEX PHARMACEUTICALS INC.-2013-000954

PATIENT
  Age: 56 Year
  Sex: Male

DRUGS (3)
  1. INCIVO [Suspect]
     Indication: HEPATITIS C
     Dosage: DOSAGE FORM: TABLET
  2. PEG-INTERFERON [Suspect]
     Indication: HEPATITIS C
  3. RIBAVIRIN [Suspect]
     Indication: HEPATITIS C

REACTIONS (5)
  - Ascites [Not Recovered/Not Resolved]
  - Peritonitis bacterial [Not Recovered/Not Resolved]
  - Hepatic function abnormal [Not Recovered/Not Resolved]
  - Fatigue [Not Recovered/Not Resolved]
  - Anaemia [Not Recovered/Not Resolved]
